FAERS Safety Report 18330021 (Version 1)
Quarter: 2020Q3

REPORT INFORMATION
  Report Type: Spontaneous
  Country: US (occurrence: US)
  Receive Date: 20200930
  Receipt Date: 20200930
  Transmission Date: 20201103
  Serious: Yes (Hospitalization)
  Sender: FDA-Public Use
  Company Number: US-PFIZER INC-2020373797

PATIENT
  Age: 46 Year
  Sex: Female
  Weight: 46.72 kg

DRUGS (2)
  1. CHANTIX [Suspect]
     Active Substance: VARENICLINE TARTRATE
     Indication: SMOKING CESSATION THERAPY
     Dosage: UNK (STARTED OUT WITH SAMPLE PACK/TOOK AS DIRECTED)
  2. CHANTIX [Suspect]
     Active Substance: VARENICLINE TARTRATE
     Dosage: 4 MG

REACTIONS (4)
  - Illness [Unknown]
  - Intentional overdose [Unknown]
  - Abdominal discomfort [Unknown]
  - Chronic obstructive pulmonary disease [Not Recovered/Not Resolved]
